FAERS Safety Report 5988238-3 (Version None)
Quarter: 2008Q4

REPORT INFORMATION
  Report Type: 
  Country: None (occurrence: None)
  Receive Date: 20081210
  Receipt Date: 20081209
  Transmission Date: 20090506
  Serious: Yes (Death)
  Sender: FDA-Public Use
  Company Number: JP-JNJFOC-20080902777

PATIENT
  Sex: Female
  Weight: 51 kg

DRUGS (30)
  1. ITRIZOLE [Suspect]
     Indication: PROPHYLAXIS
     Route: 048
  2. CRAVIT [Concomitant]
     Indication: PROPHYLAXIS
     Route: 048
  3. FINIBAX [Concomitant]
     Indication: PYREXIA
     Route: 042
  4. PRIDOL [Concomitant]
     Indication: ENGRAFTMENT SYNDROME
     Route: 042
  5. CIPROXAN [Concomitant]
     Indication: PROPHYLAXIS
     Route: 048
  6. ZOVIRAX [Concomitant]
     Indication: PROPHYLAXIS
     Route: 048
  7. PROGRAF [Concomitant]
     Route: 042
  8. PROGRAF [Concomitant]
     Indication: PROPHYLAXIS
     Route: 042
  9. CLARITHROMYCIN [Concomitant]
     Indication: PYREXIA
     Route: 048
  10. ALKERAN [Concomitant]
     Indication: ACUTE MYELOID LEUKAEMIA
     Route: 042
  11. GRAN [Concomitant]
     Indication: ACUTE MYELOID LEUKAEMIA
     Route: 042
  12. DECADRON [Concomitant]
     Indication: ACUTE MYELOID LEUKAEMIA
     Route: 042
  13. PRIDOL [Concomitant]
     Route: 042
  14. PRIDOL [Concomitant]
     Route: 042
  15. PRIDOL [Concomitant]
     Route: 042
  16. TARGOCID [Concomitant]
     Indication: PYREXIA
     Route: 042
  17. MAXIPIME [Concomitant]
     Route: 042
  18. MAXIPIME [Concomitant]
     Indication: PYREXIA
     Route: 042
  19. BLUBATOSINE [Concomitant]
     Indication: PYREXIA
     Route: 042
  20. AMIKAMYCIN [Concomitant]
     Indication: PYREXIA
     Route: 042
  21. DENOSINE [Concomitant]
     Indication: CYTOMEGALOVIRUS INFECTION
     Route: 042
  22. PREDONINE [Concomitant]
     Indication: ENGRAFTMENT SYNDROME
     Route: 042
  23. PREDONINE [Concomitant]
     Indication: PROPHYLAXIS
     Route: 042
  24. FUNGUARD [Concomitant]
     Indication: PYREXIA
     Route: 042
  25. FLUDARA [Concomitant]
     Indication: ACUTE MYELOID LEUKAEMIA
     Route: 042
  26. PRIDOL [Concomitant]
     Route: 042
  27. PRIDOL [Concomitant]
     Indication: PROPHYLAXIS
     Route: 042
  28. PREDNISOLONE [Concomitant]
     Indication: ENGRAFTMENT SYNDROME
     Route: 048
  29. PROGRAF [Concomitant]
     Route: 048
  30. MEROPEN [Concomitant]
     Indication: PYREXIA
     Route: 042

REACTIONS (6)
  - CYTOMEGALOVIRUS INFECTION [None]
  - ENGRAFTMENT SYNDROME [None]
  - GRAFT VERSUS HOST DISEASE [None]
  - MULTI-ORGAN FAILURE [None]
  - RENAL IMPAIRMENT [None]
  - THROMBOTIC MICROANGIOPATHY [None]
